FAERS Safety Report 17226866 (Version 2)
Quarter: 2020Q1

REPORT INFORMATION
  Report Type: Report from Study
  Country: None (occurrence: US)
  Receive Date: 20200102
  Receipt Date: 20200130
  Transmission Date: 20200409
  Serious: Yes (Hospitalization, Other)
  Sender: FDA-Public Use
  Company Number: US-ABBVIE-19K-163-2908546-00

PATIENT
  Sex: Female
  Weight: 88.98 kg

DRUGS (1)
  1. HUMIRA [Suspect]
     Active Substance: ADALIMUMAB
     Indication: PSORIATIC ARTHROPATHY
     Route: 058

REACTIONS (6)
  - Musculoskeletal disorder [Unknown]
  - Intervertebral disc operation [Unknown]
  - Drug ineffective [Unknown]
  - Ulcer haemorrhage [Unknown]
  - Sensory disturbance [Unknown]
  - Pain in extremity [Unknown]
